FAERS Safety Report 13540617 (Version 4)
Quarter: 2017Q3

REPORT INFORMATION
  Report Type: Spontaneous
  Country: FR (occurrence: FR)
  Receive Date: 20170512
  Receipt Date: 20170807
  Transmission Date: 20171127
  Serious: Yes (Hospitalization)
  Sender: FDA-Public Use
  Company Number: FR-PFIZER INC-2017207766

PATIENT
  Age: 62 Year
  Sex: Male

DRUGS (7)
  1. KARDEGIC [Suspect]
     Active Substance: ASPIRIN LYSINE
     Dosage: 75 MG, 1X/DAY
     Route: 048
  2. TENORMIN [Suspect]
     Active Substance: ATENOLOL
     Dosage: 50 MG, 1X/DAY
     Route: 048
     Dates: end: 20170419
  3. TRULICITY [Suspect]
     Active Substance: DULAGLUTIDE
     Indication: TYPE 2 DIABETES MELLITUS
     Dosage: 0.143 DF, WEEKLY
     Route: 058
     Dates: start: 201612, end: 20170419
  4. COVERSYL /00790702/ [Suspect]
     Active Substance: PERINDOPRIL
     Dosage: 10 MG, 1X/DAY
     Route: 048
     Dates: end: 20170419
  5. FLODIL /00646501/ [Suspect]
     Active Substance: FELODIPINE
     Dosage: 5 MG, 1X/DAY
     Route: 048
  6. GALVUS [Suspect]
     Active Substance: VILDAGLIPTIN
     Indication: TYPE 2 DIABETES MELLITUS
     Dosage: 50 MG, 2X/DAY
     Route: 048
     Dates: start: 201612, end: 20170419
  7. ATORVASTATIN CALCIUM. [Suspect]
     Active Substance: ATORVASTATIN CALCIUM
     Dosage: 20 MG, 1X/DAY
     Route: 048
     Dates: end: 20170420

REACTIONS (3)
  - Cholelithiasis [Recovering/Resolving]
  - Hepatic steatosis [Recovering/Resolving]
  - Pancreatitis acute [Recovering/Resolving]

NARRATIVE: CASE EVENT DATE: 20170418
